FAERS Safety Report 7323012 (Version 3)
Quarter: 2012Q4

REPORT INFORMATION
  Report Type: 
  Country: US (occurrence: US)
  Receive Date: 20100317
  Receipt Date: 20121218
  Transmission Date: 20130627
  Serious: Yes (Hospitalization, Other)
  Sender: FDA-Public Use
  Company Number: PHHO2010US03936

PATIENT
  Age: 48 Year
  Sex: Male
  Weight: 77.1 kg

DRUGS (20)
  1. AFINITOR [Suspect]
     Indication: GLIOBLASTOMA MULTIFORME
     Dosage: 10 mg, QD
     Route: 048
     Dates: start: 20091231, end: 20100309
  2. AFINITOR [Suspect]
     Dosage: 10 mg, QD
     Route: 048
     Dates: start: 20100318
  3. AVASTIN [Suspect]
     Indication: GLIOBLASTOMA MULTIFORME
     Dosage: 1100 mg, 1 in 2 weeks
     Route: 042
     Dates: start: 20091015, end: 20091015
  4. AVASTIN [Suspect]
     Dosage: 950 mg, 1 in 2 weeks
     Route: 042
     Dates: start: 20091029, end: 20091112
  5. AVASTIN [Suspect]
     Dosage: UNK
     Route: 042
     Dates: start: 20100211, end: 20100211
  6. TEMOZOLOMIDE [Suspect]
     Indication: GLIOBLASTOMA MULTIFORME
     Dosage: 180 mg, QD
     Route: 048
     Dates: start: 20091015, end: 20091125
  7. COUMADIN [Concomitant]
     Indication: DEEP VEIN THROMBOSIS
     Dosage: UNK
     Dates: start: 20100213, end: 20100309
  8. COUMADIN [Concomitant]
     Indication: PULMONARY EMBOLISM
  9. ELAVIL [Concomitant]
     Dosage: UNK
     Route: 048
     Dates: start: 20101009
  10. DEXAMETHASONE [Concomitant]
     Dosage: 4 mg, TID
     Route: 048
     Dates: start: 20090922, end: 20100102
  11. FAMOTIDINE [Concomitant]
     Dosage: 20 mg, BID
     Route: 048
     Dates: start: 20090922
  12. TEMAZEPAM [Concomitant]
     Dosage: 30 mg, QHS
     Route: 048
     Dates: start: 200910
  13. COMPAZINE [Concomitant]
     Dosage: 10 mg, UNK
     Route: 048
     Dates: start: 20091015, end: 20091125
  14. BACTRIM DS [Concomitant]
     Dosage: UNK
     Route: 048
     Dates: start: 200910
  15. REMERON [Concomitant]
     Dosage: 15 mg, UNK
     Route: 048
  16. ACETAMINOPHEN [Concomitant]
  17. ATENOLOL [Concomitant]
     Indication: HYPERTENSION
  18. ACETAMINOPHEN W/CODEINE PHOSPHATE [Concomitant]
  19. MIDAZOLAM [Concomitant]
  20. ZOLPIDEM [Concomitant]

REACTIONS (5)
  - Epistaxis [Recovered/Resolved]
  - Haematemesis [Recovered/Resolved]
  - Melaena [Recovered/Resolved]
  - Haematochezia [Recovered/Resolved]
  - Anxiety [Recovered/Resolved]
